FAERS Safety Report 15727293 (Version 1)
Quarter: 2018Q4

REPORT INFORMATION
  Report Type: Spontaneous
  Country: SE (occurrence: SE)
  Receive Date: 20181217
  Receipt Date: 20181217
  Transmission Date: 20190205
  Serious: Yes (Other)
  Sender: FDA-Public Use
  Company Number: SE-ROCHE-2231471

PATIENT
  Age: 30 Year
  Sex: Female
  Weight: 60 kg

DRUGS (1)
  1. IKTORIVIL [Suspect]
     Active Substance: CLONAZEPAM
     Indication: ANXIETY
     Dosage: MOST RECENT DOSE ON 20/OCT/2018
     Route: 065
     Dates: start: 20180927

REACTIONS (1)
  - Abnormal dreams [Recovered/Resolved with Sequelae]

NARRATIVE: CASE EVENT DATE: 20181020
